FAERS Safety Report 10401490 (Version 1)
Quarter: 2014Q1

REPORT INFORMATION
  Report Type: Spontaneous
  Country: US (occurrence: None)
  Receive Date: 20130815
  Receipt Date: 20130815
  Transmission Date: 20141002
  Serious: Yes (Other)
  Sender: FDA-Public Use
  Company Number: ADR-2012-01741

PATIENT
  Sex: Female

DRUGS (5)
  1. BACLOFEN INTRATHECAL [Suspect]
     Indication: SPINAL PAIN
  2. BACLOFEN INTRATHECAL [Suspect]
     Indication: PAIN
  3. MORPHINE (COMPOUNDED) [Concomitant]
  4. CLONIDINE [Concomitant]
  5. BUPIVACAINE [Concomitant]

REACTIONS (2)
  - Abdominal pain [None]
  - Nephrolithiasis [None]
